FAERS Safety Report 15478716 (Version 1)
Quarter: 2018Q4

REPORT INFORMATION
  Report Type: Spontaneous
  Country: GB (occurrence: GB)
  Receive Date: 20181009
  Receipt Date: 20181009
  Transmission Date: 20190205
  Serious: Yes (Other)
  Sender: FDA-Public Use
  Company Number: GB-MYLANLABS-2018M1073856

PATIENT
  Age: 73 Year
  Sex: Male

DRUGS (2)
  1. BISOPROLOL [Suspect]
     Active Substance: BISOPROLOL
     Dosage: UNK
  2. BISOPROLOL [Suspect]
     Active Substance: BISOPROLOL
     Indication: PRODUCT USED FOR UNKNOWN INDICATION
     Dosage: 1.25 MG, UNK

REACTIONS (5)
  - Atrioventricular block complete [Unknown]
  - Acute kidney injury [Unknown]
  - Dyspnoea [Unknown]
  - Cerebrovascular accident [Unknown]
  - Syncope [Unknown]

NARRATIVE: CASE EVENT DATE: 2016
